FAERS Safety Report 13582114 (Version 1)
Quarter: 2017Q2

REPORT INFORMATION
  Report Type: Spontaneous
  Country: IT (occurrence: IT)
  Receive Date: 20170525
  Receipt Date: 20170525
  Transmission Date: 20170830
  Serious: Yes (Hospitalization)
  Sender: FDA-Public Use
  Company Number: IT-BAYER-2016-211777

PATIENT
  Age: 64 Year
  Sex: Male
  Weight: 94 kg

DRUGS (16)
  1. DALACIN C [Suspect]
     Active Substance: CLINDAMYCIN PHOSPHATE
     Indication: STAPHYLOCOCCAL INFECTION
     Dosage: 900 MG, QD
     Dates: start: 20160919, end: 20160925
  2. ATORVASTATIN [Concomitant]
     Active Substance: ATORVASTATIN
     Indication: HYPERCHOLESTEROLAEMIA
     Dosage: 40 MG, QD
     Route: 048
     Dates: end: 20160921
  3. VALCYTE [Suspect]
     Active Substance: VALGANCICLOVIR HYDROCHLORIDE
     Indication: CYTOMEGALOVIRUS INFECTION
     Dosage: 450 MG, QID
     Route: 048
     Dates: start: 20161006, end: 20161018
  4. BASSADO [Suspect]
     Active Substance: DOXYCYCLINE HYCLATE
     Indication: STAPHYLOCOCCAL INFECTION
     Dosage: 100 MG, QD
     Route: 048
     Dates: start: 20161001, end: 20161010
  5. ACICLOVIR [Suspect]
     Active Substance: ACYCLOVIR
     Indication: ANTIVIRAL PROPHYLAXIS
     Dosage: 900 MG, QD
     Route: 048
     Dates: start: 20160409, end: 20161016
  6. PANTOPRAZOLE SODIUM. [Suspect]
     Active Substance: PANTOPRAZOLE SODIUM
     Indication: PROPHYLAXIS AGAINST GASTROINTESTINAL ULCER
     Dosage: 40 MG, QD
     Route: 048
     Dates: start: 20160821, end: 20161018
  7. DEURSIL [Suspect]
     Active Substance: URSODIOL
     Indication: BILIARY ANASTOMOSIS
     Dosage: 300 MG, BID
     Route: 048
     Dates: start: 20160826, end: 20161018
  8. METHYLPREDNISOLON [Concomitant]
     Active Substance: METHYLPREDNISOLONE
     Indication: LIVER TRANSPLANT
     Dosage: UNK
     Dates: start: 20160821, end: 20160928
  9. CARDIOASPIRIN [Suspect]
     Active Substance: ASPIRIN
     Indication: ANTIPLATELET THERAPY
  10. AMIODARONE HYDROCHLORIDE. [Suspect]
     Active Substance: AMIODARONE HYDROCHLORIDE
     Indication: ATRIAL FIBRILLATION
     Dosage: 200 MG, QD
     Route: 048
     Dates: start: 20160901, end: 20161027
  11. SILODOSIN [Concomitant]
     Active Substance: SILODOSIN
     Indication: BENIGN PROSTATIC HYPERPLASIA
     Dosage: 8 MG, QD
     Route: 048
     Dates: end: 20160921
  12. FRAXIPARINE [Concomitant]
     Active Substance: NADROPARIN CALCIUM
     Indication: THROMBOSIS PROPHYLAXIS
     Dosage: 0.4 ML, QD
     Route: 058
     Dates: start: 20160821, end: 20160921
  13. AMLODIPINE [Concomitant]
     Active Substance: AMLODIPINE BESYLATE
  14. CARDIOASPIRIN [Suspect]
     Active Substance: ASPIRIN
     Indication: MYOCARDIAL ISCHAEMIA
     Dosage: 100 MG, QD
     Route: 048
     Dates: start: 20160921, end: 20161018
  15. TACROLIMUS. [Suspect]
     Active Substance: TACROLIMUS
     Indication: LIVER TRANSPLANT
     Dosage: 3 MG, BID
     Route: 048
     Dates: start: 20160821
  16. TRAMADOL. [Concomitant]
     Active Substance: TRAMADOL
     Indication: PAIN
     Dosage: 20 DF, IRR
     Dates: start: 20160821, end: 20161016

REACTIONS (6)
  - Product use in unapproved indication [Recovering/Resolving]
  - Anaemia [Recovering/Resolving]
  - Weight increased [Recovering/Resolving]
  - Stevens-Johnson syndrome [Recovering/Resolving]
  - Hyponatraemia [Recovering/Resolving]
  - Generalised oedema [Recovering/Resolving]

NARRATIVE: CASE EVENT DATE: 20161016
